FAERS Safety Report 9239034 (Version 3)
Quarter: 2013Q2

REPORT INFORMATION
  Report Type: Spontaneous
  Country: JP (occurrence: JP)
  Receive Date: 20130418
  Receipt Date: 20130619
  Transmission Date: 20140414
  Serious: Yes (Death, Hospitalization, Other)
  Sender: FDA-Public Use
  Company Number: JP-ROCHE-1214449

PATIENT
  Age: 71 Year
  Sex: Male
  Weight: 47 kg

DRUGS (4)
  1. XELODA [Suspect]
     Indication: COLON CANCER
     Dosage: IT IS ADMINISTER/ONE WEEKLY HOLIDAY MEDICINE FOR TWO WEEKS.
     Route: 048
     Dates: start: 20130124, end: 201303
  2. DAIKENCHUTO [Concomitant]
     Route: 048
     Dates: start: 20121225, end: 20130328
  3. GASMOTIN [Concomitant]
     Route: 048
     Dates: start: 20121225, end: 20130328
  4. MAGNESIUM OXIDE [Concomitant]
     Route: 048
     Dates: start: 20121225, end: 20130328

REACTIONS (5)
  - Multi-organ failure [Fatal]
  - Neutrophil count decreased [Unknown]
  - Pulmonary haemorrhage [Unknown]
  - Diarrhoea [Unknown]
  - Hypophagia [Unknown]
